FAERS Safety Report 9938139 (Version 1)
Quarter: 2014Q1

REPORT INFORMATION
  Report Type: Spontaneous
  Country: FR (occurrence: FR)
  Receive Date: 20140303
  Receipt Date: 20140303
  Transmission Date: 20141002
  Serious: Yes (Hospitalization)
  Sender: FDA-Public Use
  Company Number: FR-TEVA-466209ISR

PATIENT
  Age: 63 Year
  Sex: Male

DRUGS (3)
  1. OXALIPLATIN [Suspect]
     Indication: ADENOCARCINOMA OF COLON
     Dosage: 460 MG/M2 OVER 30 MINS
     Route: 033
  2. FOLINIC ACID [Concomitant]
     Indication: ADENOCARCINOMA OF COLON
     Route: 042
  3. FLUOROURACIL [Concomitant]
     Indication: ADENOCARCINOMA OF COLON
     Route: 042

REACTIONS (3)
  - Histiocytosis haematophagic [Recovering/Resolving]
  - Thrombocytopenia [Recovering/Resolving]
  - Septic shock [Recovering/Resolving]
